FAERS Safety Report 5136490-9 (Version None)
Quarter: 2006Q4

REPORT INFORMATION
  Report Type: 
  Country: None (occurrence: None)
  Receive Date: 20061027
  Receipt Date: 20060906
  Transmission Date: 20070319
  Serious: Yes (Hospitalization, Disabling)
  Sender: FDA-Public Use
  Company Number: FR-BRISTOL-MYERS SQUIBB COMPANY-13508593

PATIENT
  Age: 74 Year
  Sex: Male
  Weight: 67 kg

DRUGS (3)
  1. HOLOXAN [Suspect]
     Indication: NON-HODGKIN'S LYMPHOMA
     Dates: start: 20060726, end: 20060726
  2. UROMITEXAN [Suspect]
     Indication: NON-HODGKIN'S LYMPHOMA
     Dates: start: 20060726, end: 20060726
  3. VEPESID [Suspect]
     Indication: NON-HODGKIN'S LYMPHOMA
     Dates: start: 20060726, end: 20060726

REACTIONS (8)
  - ABNORMAL BEHAVIOUR [None]
  - ANGIOPATHY [None]
  - APHASIA [None]
  - CEREBRAL THROMBOSIS [None]
  - CONFUSIONAL STATE [None]
  - ENCEPHALOPATHY [None]
  - HEMIPARESIS [None]
  - IMPAIRED SELF-CARE [None]
